FAERS Safety Report 6443426-7 (Version None)
Quarter: 2009Q4

REPORT INFORMATION
  Report Type: 
  Country: None (occurrence: None)
  Receive Date: 20091117
  Receipt Date: 20091110
  Transmission Date: 20100525
  Serious: Yes (Other)
  Sender: FDA-Public Use
  Company Number: US-PFIZER INC-2009284349

PATIENT
  Sex: Female

DRUGS (4)
  1. GLIPIZIDE [Suspect]
     Indication: DIABETES MELLITUS
     Dates: end: 20090101
  2. PRANDIN [Suspect]
     Indication: DIABETES MELLITUS
     Dates: end: 20090101
  3. SITAGLIPTIN [Suspect]
     Indication: DIABETES MELLITUS
     Dates: end: 20090101
  4. INSULIN [Suspect]
     Indication: DIABETES MELLITUS
     Dosage: UNK
     Dates: start: 20090101

REACTIONS (2)
  - BLOOD GLUCOSE INCREASED [None]
  - DRUG INEFFECTIVE [None]
